FAERS Safety Report 7768439-4 (Version None)
Quarter: 2011Q3

REPORT INFORMATION
  Report Type: 
  Country: None (occurrence: None)
  Receive Date: 20110922
  Receipt Date: 20110624
  Transmission Date: 20111222
  Serious: No
  Sender: FDA-Public Use
  Company Number: US-ASTRAZENECA-2011SE38180

PATIENT
  Age: 62 Year
  Sex: Female

DRUGS (17)
  1. FLONASE [Concomitant]
  2. ZYRTEC [Concomitant]
  3. DIOVAN [Concomitant]
  4. CLONAZEPAM [Concomitant]
  5. CYMBALTA [Concomitant]
  6. STELIVO [Concomitant]
  7. TEMAZEPAM [Concomitant]
  8. ROBAXIN [Concomitant]
  9. SEROQUEL XR [Suspect]
     Route: 048
     Dates: start: 20110401, end: 20110601
  10. SINGULAIR [Concomitant]
  11. SEROQUEL XR [Suspect]
     Indication: DEPRESSION
     Route: 048
  12. VESICARE [Concomitant]
  13. KLONOPIN [Concomitant]
  14. RANITIDINE [Concomitant]
  15. NAPROXEN [Concomitant]
  16. MIRAPEX [Concomitant]
  17. EPSILON [Concomitant]

REACTIONS (8)
  - SEDATION [None]
  - STRESS [None]
  - DEPRESSIVE SYMPTOM [None]
  - DISABILITY [None]
  - ANXIETY [None]
  - INSOMNIA [None]
  - DEPRESSED MOOD [None]
  - DRUG INEFFECTIVE [None]
